FAERS Safety Report 10100701 (Version 1)
Quarter: 2014Q2

REPORT INFORMATION
  Report Type: Spontaneous
  Country: TR (occurrence: TR)
  Receive Date: 20140423
  Receipt Date: 20140423
  Transmission Date: 20141212
  Serious: Yes (Hospitalization, Other)
  Sender: FDA-Public Use
  Company Number: TR-TAKEDA-2014TUS003109

PATIENT
  Age: 46 Year
  Sex: Female

DRUGS (3)
  1. COLCHICINE [Suspect]
     Indication: FAMILIAL MEDITERRANEAN FEVER
     Dosage: 1.5 MG, QD
  2. COLCHICINE [Suspect]
     Dosage: 0.5 MG, QD
  3. COLCHICINE [Suspect]
     Dosage: 1 MG, QD

REACTIONS (10)
  - Depression [Recovered/Resolved]
  - Renal failure chronic [Recovered/Resolved]
  - Pyrexia [Recovered/Resolved]
  - Arthritis [Recovered/Resolved]
  - Gait disturbance [Recovered/Resolved]
  - Body temperature increased [Recovered/Resolved]
  - Decreased appetite [Recovered/Resolved]
  - Activities of daily living impaired [Recovered/Resolved]
  - Exposure during pregnancy [Unknown]
  - Diarrhoea [Not Recovered/Not Resolved]
